FAERS Safety Report 4359110-X (Version None)
Quarter: 2004Q2

REPORT INFORMATION
  Report Type: 
  Country: None (occurrence: None)
  Receive Date: 20040517
  Receipt Date: 20040517
  Transmission Date: 20050107
  Serious: Yes (Hospitalization)
  Sender: FDA-Public Use
  Company Number: None

PATIENT
  Age: 58 Year
  Sex: Male

DRUGS (9)
  1. CISPLATIN [Suspect]
     Indication: NEOPLASM MALIGNANT
     Dosage: 48 MG QD
  2. PROCHLORPERAZINE [Concomitant]
  3. CELEBREX [Concomitant]
  4. ALBUTEROL [Concomitant]
  5. PAROXETINE HCL [Concomitant]
  6. ACIPHEX [Concomitant]
  7. LORTAB [Concomitant]
  8. ETOPOSIDE [Suspect]
     Dosage: 76 MG QD
  9. ARA-C [Suspect]
     Dosage: 3800MG

REACTIONS (1)
  - FEBRILE NEUTROPENIA [None]
